FAERS Safety Report 8893880 (Version 1)
Quarter: 2012Q4

REPORT INFORMATION
  Report Type: 
  Country: US (occurrence: US)
  Receive Date: 20121107
  Receipt Date: 20121107
  Transmission Date: 20130627
  Serious: No
  Sender: FDA-Public Use
  Company Number: US-AMGEN-USASP2011060260

PATIENT
  Age: 56 Year
  Sex: Female

DRUGS (13)
  1. ENBREL [Suspect]
     Indication: PRODUCT USED FOR UNKNOWN INDICATION
     Dosage: 25 mg, 2 times/wk
  2. ARAVA [Concomitant]
     Dosage: 10 mg, UNK
  3. DIOVAN [Concomitant]
     Dosage: 160 mg, UNK
  4. NORVASC [Concomitant]
     Dosage: 2.5 mg, UNK
  5. AMBIEN [Concomitant]
     Dosage: 5 mg, UNK
  6. ZOLOFT [Concomitant]
     Dosage: 25 mg, UNK
  7. ZOCOR [Concomitant]
     Dosage: 5 mg, UNK
  8. SYNTHROID [Concomitant]
     Dosage: 25 mCi/g, UNK
  9. HUMALOG [Concomitant]
     Dosage: 100 ml, UNK
  10. LANTUS [Concomitant]
     Dosage: 100 ml, UNK
  11. METFORMIN [Concomitant]
     Dosage: 500 mg, UNK
  12. CALCIUM [Concomitant]
     Dosage: 600 UNK, UNK
  13. ASPIRIN [Concomitant]
     Dosage: 81 mg, UNK

REACTIONS (5)
  - Blood pressure increased [Unknown]
  - Blood glucose increased [Unknown]
  - Headache [Unknown]
  - Diarrhoea [Unknown]
  - Injection site erythema [Unknown]
